APPROVED DRUG PRODUCT: CLOPIDOGREL BISULFATE
Active Ingredient: CLOPIDOGREL BISULFATE
Strength: EQ 75MG BASE
Dosage Form/Route: TABLET;ORAL
Application: A213351 | Product #001 | TE Code: AB
Applicant: PURACAP LABORATORIES LLC DBA BLU PHARMACEUTICALS
Approved: Jul 17, 2020 | RLD: No | RS: No | Type: RX